FAERS Safety Report 11288348 (Version 2)
Quarter: 2015Q3

REPORT INFORMATION
  Report Type: Spontaneous
  Country: US (occurrence: US)
  Receive Date: 20150721
  Receipt Date: 20150721
  Transmission Date: 20151125
  Serious: No
  Sender: FDA-Public Use
  Company Number: US-UNITED THERAPEUTICS-UNT-2014-011615

PATIENT
  Sex: Female
  Weight: 108.84 kg

DRUGS (2)
  1. DILTIAZEM [Suspect]
     Active Substance: DILTIAZEM
     Indication: PRODUCT USED FOR UNKNOWN INDICATION
  2. REMODULIN [Suspect]
     Active Substance: TREPROSTINIL
     Indication: PULMONARY ARTERIAL HYPERTENSION
     Dosage: 0.026 ?G/KG/MIN, CONTINUING
     Route: 041
     Dates: start: 20140123

REACTIONS (10)
  - Sinusitis [Unknown]
  - Influenza like illness [Unknown]
  - Urinary incontinence [Unknown]
  - Nausea [Unknown]
  - Cough [Unknown]
  - Seasonal allergy [Unknown]
  - Heart rate increased [Unknown]
  - Faecal incontinence [Unknown]
  - Pain [Unknown]
  - Dyspnoea [Unknown]

NARRATIVE: CASE EVENT DATE: 2014
